FAERS Safety Report 13675626 (Version 1)
Quarter: 2017Q2

REPORT INFORMATION
  Report Type: Spontaneous
  Country: US (occurrence: US)
  Receive Date: 20170621
  Receipt Date: 20170621
  Transmission Date: 20170830
  Serious: Yes (Other)
  Sender: FDA-Public Use
  Company Number: US-BAUSCH-BL-2017-019421

PATIENT
  Age: 35 Year
  Sex: Female

DRUGS (2)
  1. LOTEMAX [Suspect]
     Active Substance: LOTEPREDNOL ETABONATE
     Indication: UVEITIS
     Dosage: AS NEEDED, IN AFFECTED EYE
     Route: 047
     Dates: start: 2012
  2. PROLENSA [Suspect]
     Active Substance: BROMFENAC SODIUM
     Indication: EYE SWELLING
     Dosage: 1 DROP IN EACH EYE
     Route: 047
     Dates: start: 2017

REACTIONS (5)
  - Uveitis [Recovering/Resolving]
  - Pain [Unknown]
  - Off label use [Unknown]
  - Disease recurrence [Recovering/Resolving]
  - Product physical consistency issue [Unknown]

NARRATIVE: CASE EVENT DATE: 2017
